FAERS Safety Report 8012640-1 (Version None)
Quarter: 2011Q4

REPORT INFORMATION
  Report Type: 
  Country: None (occurrence: None)
  Receive Date: 20111229
  Receipt Date: 20111223
  Transmission Date: 20120403
  Serious: Yes (Hospitalization)
  Sender: FDA-Public Use
  Company Number: IL-BAYER-2011-116591

PATIENT
  Age: 30 Year
  Sex: Female

DRUGS (3)
  1. NEXAVAR [Suspect]
     Dosage: 400 MG QD+ 200 MG QD
     Route: 048
     Dates: start: 20110101, end: 20110101
  2. NEXAVAR [Suspect]
     Dosage: 200 MG, QD
     Route: 048
     Dates: start: 20110101
  3. NEXAVAR [Suspect]
     Indication: THYROID CANCER
     Dosage: DAILY DOSE 800 MG
     Route: 048
     Dates: start: 20111101, end: 20110101

REACTIONS (3)
  - BONE PAIN [None]
  - PYREXIA [None]
  - CHILLS [None]
